FAERS Safety Report 7363380-3 (Version None)
Quarter: 2011Q1

REPORT INFORMATION
  Report Type: 
  Country: None (occurrence: None)
  Receive Date: 20110321
  Receipt Date: 20110308
  Transmission Date: 20110831
  Serious: Yes (Hospitalization)
  Sender: FDA-Public Use
  Company Number: US-JNJFOC-20080102137

PATIENT
  Sex: Female
  Weight: 35.2 kg

DRUGS (8)
  1. INFLIXIMAB [Suspect]
     Indication: INFLAMMATORY BOWEL DISEASE
     Dosage: 10TH INFUSION
     Route: 042
  2. INFLIXIMAB [Suspect]
     Route: 042
  3. INFLIXIMAB [Suspect]
     Indication: CROHN'S DISEASE
     Route: 042
  4. MESALAMINE [Concomitant]
  5. MERCAPTOPURINE [Concomitant]
  6. INFLIXIMAB [Suspect]
     Route: 042
  7. INFLIXIMAB [Suspect]
     Dosage: 10TH INFUSION
     Route: 042
  8. INFLIXIMAB [Suspect]
     Route: 042

REACTIONS (3)
  - FISTULA [None]
  - CROHN'S DISEASE [None]
  - CONSTIPATION [None]
